FAERS Safety Report 25268765 (Version 1)
Quarter: 2025Q2

REPORT INFORMATION
  Report Type: Spontaneous
  Country: GR (occurrence: GR)
  Receive Date: 20250505
  Receipt Date: 20250505
  Transmission Date: 20250717
  Serious: Yes (Death, Life-Threatening, Hospitalization, Other)
  Sender: STRIDES
  Company Number: GR-STRIDES ARCOLAB LIMITED-2025SP005444

PATIENT
  Sex: Female

DRUGS (3)
  1. HYDRALAZINE HYDROCHLORIDE [Suspect]
     Active Substance: HYDRALAZINE HYDROCHLORIDE
     Indication: Cardiac failure
     Route: 065
  2. DOBUTAMINE [Suspect]
     Active Substance: DOBUTAMINE HYDROCHLORIDE
     Indication: Cardiac failure
     Route: 065
  3. DOPAMINE [Suspect]
     Active Substance: DOPAMINE HYDROCHLORIDE
     Indication: Cardiac failure
     Route: 065

REACTIONS (5)
  - Condition aggravated [Fatal]
  - Drug ineffective for unapproved indication [Fatal]
  - Pulmonary oedema neonatal [Unknown]
  - Renal failure neonatal [Unknown]
  - Hepatic failure [Unknown]
